FAERS Safety Report 4319686-5 (Version None)
Quarter: 2004Q1

REPORT INFORMATION
  Report Type: 
  Country: None (occurrence: None)
  Receive Date: 20040319
  Receipt Date: 20030407
  Transmission Date: 20041129
  Serious: Yes (Disabling)
  Sender: FDA-Public Use
  Company Number: WAES 0304USA00818

PATIENT
  Age: 34 Year
  Sex: Male
  Weight: 95 kg

DRUGS (5)
  1. CYCLOBENZAPRINE HYDROCHLORIDE [Concomitant]
  2. SKELAXIN [Concomitant]
  3. NAPROXEN [Concomitant]
  4. VIOXX [Suspect]
     Indication: MUSCLE SPASMS
     Route: 048
     Dates: start: 20010626, end: 20010101
  5. VIOXX [Suspect]
     Indication: BUTTOCK PAIN
     Route: 048
     Dates: start: 20010626, end: 20010101

REACTIONS (8)
  - BLOOD CHOLESTEROL INCREASED [None]
  - BLOOD PRESSURE INCREASED [None]
  - DEPRESSION [None]
  - DISTURBANCE IN ATTENTION [None]
  - EMOTIONAL DISTRESS [None]
  - HYPERTENSION [None]
  - IMPAIRED WORK ABILITY [None]
  - STRESS SYMPTOMS [None]
